FAERS Safety Report 19054465 (Version 1)
Quarter: 2021Q1

REPORT INFORMATION
  Report Type: Spontaneous
  Country: CN (occurrence: CN)
  Receive Date: 20210324
  Receipt Date: 20210324
  Transmission Date: 20210420
  Serious: Yes (Other)
  Sender: FDA-Public Use
  Company Number: CN-ALLERGAN-2112059US

PATIENT
  Sex: Male
  Weight: 48 kg

DRUGS (3)
  1. ZYVOX [Concomitant]
     Active Substance: LINEZOLID
     Indication: PNEUMONIA
     Dosage: 300 ML, BID
     Route: 041
     Dates: start: 20210226, end: 20210304
  2. CEFTAZIDIME;AVIBACTAM ? BP [Suspect]
     Active Substance: AVIBACTAM SODIUM\CEFTAZIDIME
     Indication: PNEUMONIA
     Dosage: 2.5 G, TID
     Route: 041
     Dates: start: 20210221, end: 20210304
  3. CIPROBAY [Concomitant]
     Indication: PNEUMONIA
     Dosage: 0.2 G, BID
     Route: 041
     Dates: start: 20210221, end: 20210226

REACTIONS (2)
  - Dysbiosis [Recovering/Resolving]
  - Superinfection fungal [Recovering/Resolving]

NARRATIVE: CASE EVENT DATE: 20210303
